FAERS Safety Report 4299115-0 (Version None)
Quarter: 2004Q1

REPORT INFORMATION
  Report Type: 
  Country: None (occurrence: None)
  Receive Date: 20040217
  Receipt Date: 20040211
  Transmission Date: 20041129
  Serious: Yes (Death)
  Sender: FDA-Public Use
  Company Number: 2004UW02477

PATIENT
  Age: 42 Year
  Sex: Male

DRUGS (4)
  1. SEROQUEL [Suspect]
  2. NEURONTIN [Suspect]
  3. LEXAPRO [Suspect]
  4. CLONAZEPAM [Suspect]

REACTIONS (2)
  - CORONARY ARTERY ATHEROSCLEROSIS [None]
  - THERAPEUTIC AGENT TOXICITY [None]
